FAERS Safety Report 8857555 (Version 1)
Quarter: 2012Q4

REPORT INFORMATION
  Report Type: 
  Country: CN (occurrence: CN)
  Receive Date: 20121024
  Receipt Date: 20121024
  Transmission Date: 20130627
  Serious: Yes (Life-Threatening)
  Sender: FDA-Public Use
  Company Number: CN-GLAXOSMITHKLINE-B0839738A

PATIENT
  Age: 76 Year
  Sex: Male
  Weight: 75 kg

DRUGS (1)
  1. FLUTICASONE PROPIONATE\SALMETEROL XINAFOATE [Suspect]
     Indication: CHRONIC OBSTRUCTIVE PULMONARY DISEASE
     Dosage: 2MCG Twice per day
     Route: 055
     Dates: start: 20110708, end: 20110708

REACTIONS (2)
  - Palpitations [Recovering/Resolving]
  - Chest discomfort [Recovering/Resolving]
